FAERS Safety Report 6933959-9 (Version None)
Quarter: 2010Q3

REPORT INFORMATION
  Report Type: 
  Country: None (occurrence: None)
  Receive Date: 20100820
  Receipt Date: 20100803
  Transmission Date: 20110219
  Serious: Yes (Hospitalization, Other)
  Sender: FDA-Public Use
  Company Number: US-BAYER-200943657NA

PATIENT
  Age: 33 Year
  Sex: Female
  Weight: 71 kg

DRUGS (8)
  1. YAZ [Suspect]
     Indication: CONTRACEPTION
     Route: 048
     Dates: start: 20070101, end: 20070101
  2. YAZ [Suspect]
     Route: 048
     Dates: start: 20070101, end: 20080701
  3. YASMIN [Suspect]
     Indication: CONTRACEPTION
     Route: 048
     Dates: start: 20010101, end: 20010101
  4. YASMIN [Suspect]
     Route: 048
     Dates: start: 20020101, end: 20060101
  5. ADVIL LIQUI-GELS [Concomitant]
     Route: 065
  6. SYNTHROID [Concomitant]
     Indication: HYPERTHYROIDISM
     Route: 065
     Dates: start: 20010101
  7. ATENOLOL [Concomitant]
  8. NASACORT [Concomitant]
     Indication: MULTIPLE ALLERGIES
     Route: 065
     Dates: start: 20010101, end: 20100101

REACTIONS (6)
  - ABDOMINAL PAIN UPPER [None]
  - BILIARY COLIC [None]
  - CHOLECYSTITIS CHRONIC [None]
  - CHOLELITHIASIS [None]
  - NAUSEA [None]
  - VOMITING [None]
